FAERS Safety Report 11002606 (Version 5)
Quarter: 2016Q1

REPORT INFORMATION
  Report Type: Spontaneous
  Country: US (occurrence: US)
  Receive Date: 20150408
  Receipt Date: 20160229
  Transmission Date: 20160525
  Serious: Yes (Hospitalization, Other)
  Sender: FDA-Public Use
  Company Number: US-GLAXOSMITHKLINE-US2015046297

PATIENT
  Age: 78 Year
  Sex: Female

DRUGS (9)
  1. LAMICTAL XR [Suspect]
     Active Substance: LAMOTRIGINE
     Dosage: 50 MG, UNK
     Dates: start: 2013
  2. SYNTHROID [Concomitant]
     Active Substance: LEVOTHYROXINE SODIUM
  3. BISOPROLOL [Concomitant]
     Active Substance: BISOPROLOL
  4. LAMICTAL XR [Suspect]
     Active Substance: LAMOTRIGINE
     Dosage: 50 MG, UNK
     Dates: start: 2013
  5. LAMICTAL [Suspect]
     Active Substance: LAMOTRIGINE
  6. LAMICTAL XR [Suspect]
     Active Substance: LAMOTRIGINE
     Indication: SEIZURE
     Dosage: 50 MG, QD
     Route: 048
     Dates: start: 201212
  7. KEPPRA [Suspect]
     Active Substance: LEVETIRACETAM
     Indication: SEIZURE
     Dosage: UNK, U
     Route: 065
     Dates: start: 2012, end: 2012
  8. AMLODIPINE [Concomitant]
     Active Substance: AMLODIPINE BESYLATE
  9. COUMADIN [Concomitant]
     Active Substance: WARFARIN SODIUM

REACTIONS (10)
  - Haemorrhoids [Not Recovered/Not Resolved]
  - Haemorrhage [Not Recovered/Not Resolved]
  - Surgery [Unknown]
  - Haemorrhoid operation [Unknown]
  - Drug intolerance [Unknown]
  - Visual impairment [Unknown]
  - Feeling abnormal [Unknown]
  - Hospitalisation [Unknown]
  - Delusion [Unknown]
  - Rash pruritic [Not Recovered/Not Resolved]

NARRATIVE: CASE EVENT DATE: 20151207
